FAERS Safety Report 13381285 (Version 2)
Quarter: 2017Q2

REPORT INFORMATION
  Report Type: Spontaneous
  Country: US (occurrence: US)
  Receive Date: 20170329
  Receipt Date: 20170407
  Transmission Date: 20170830
  Serious: Yes (Other)
  Sender: FDA-Public Use
  Company Number: US-CONCORDIA PHARMACEUTICALS INC.-GSH201703-002032

PATIENT
  Age: 8 Month
  Sex: Female
  Weight: 7.5 kg

DRUGS (5)
  1. PROPRANOLOL [Suspect]
     Active Substance: PROPRANOLOL HYDROCHLORIDE
     Indication: HYPERTENSION NEONATAL
     Route: 048
  2. HYDRALAZINE [Suspect]
     Active Substance: HYDRALAZINE HYDROCHLORIDE
     Indication: HYPERTENSION NEONATAL
     Route: 048
  3. NICARDIPINE SANDOZ (NGX) [Suspect]
     Active Substance: NICARDIPINE
     Indication: HYPERTENSION NEONATAL
     Route: 041
  4. CLONIDINE. [Suspect]
     Active Substance: CLONIDINE
     Indication: HYPERTENSION NEONATAL
     Route: 048
  5. AMLODIPINE [Suspect]
     Active Substance: AMLODIPINE BESYLATE
     Indication: HYPERTENSION NEONATAL
     Route: 048

REACTIONS (3)
  - Hypertension [Recovered/Resolved]
  - Cardiopulmonary failure [Recovered/Resolved]
  - Product use issue [Unknown]
